FAERS Safety Report 13537830 (Version 1)
Quarter: 2017Q2

REPORT INFORMATION
  Report Type: Spontaneous
  Country: US (occurrence: US)
  Receive Date: 20170511
  Receipt Date: 20170511
  Transmission Date: 20170830
  Serious: No
  Sender: FDA-Public Use
  Company Number: US-IMPAX LABORATORIES, INC-2016-IPXL-01481

PATIENT
  Age: 65 Year
  Sex: Male

DRUGS (1)
  1. FENOFIBRATE. [Suspect]
     Active Substance: FENOFIBRATE
     Indication: PRODUCT USED FOR UNKNOWN INDICATION
     Dosage: 54 MG, UNK
     Route: 065

REACTIONS (5)
  - Productive cough [Unknown]
  - Tooth disorder [Unknown]
  - Drug interaction [Unknown]
  - Dry throat [Unknown]
  - Dizziness [Unknown]
